FAERS Safety Report 18826078 (Version 1)
Quarter: 2021Q1

REPORT INFORMATION
  Report Type: Report from Study
  Country: FR (occurrence: FR)
  Receive Date: 20210202
  Receipt Date: 20210202
  Transmission Date: 20210419
  Serious: Yes (Other)
  Sender: FDA-Public Use
  Company Number: FR-PFIZER INC-2021079387

PATIENT
  Age: 68 Year
  Sex: Male
  Weight: 68 kg

DRUGS (1)
  1. BESPONSA [Suspect]
     Active Substance: INOTUZUMAB OZOGAMICIN
     Indication: B-CELL TYPE ACUTE LEUKAEMIA
     Dosage: 0.8 MG, DAILY
     Route: 042
     Dates: start: 20171228, end: 20180517

REACTIONS (2)
  - Thrombocytopenia [Not Recovered/Not Resolved]
  - Bullous haemorrhagic dermatosis [Not Recovered/Not Resolved]

NARRATIVE: CASE EVENT DATE: 20180220
